FAERS Safety Report 9597060 (Version 2)
Quarter: 2014Q1

REPORT INFORMATION
  Report Type: Spontaneous
  Country: IT (occurrence: IT)
  Receive Date: 20131004
  Receipt Date: 20140102
  Transmission Date: 20141002
  Serious: Yes (Hospitalization)
  Sender: FDA-Public Use
  Company Number: IT-GILEAD-2013-0084562

PATIENT
  Age: 47 Year
  Sex: Male

DRUGS (4)
  1. REYATAZ [Concomitant]
     Indication: ACUTE HIV INFECTION
     Dosage: 300 MG, UNK
     Route: 048
     Dates: start: 20100120, end: 20130930
  2. NORVIR [Concomitant]
     Indication: ACUTE HIV INFECTION
     Dosage: 100 MG, UNK
     Route: 048
     Dates: start: 20100120, end: 20130930
  3. VIREAD [Suspect]
     Indication: ACUTE HIV INFECTION
     Dosage: 1 DF, UNK
     Route: 048
     Dates: start: 20100120, end: 20121121
  4. EPIVIR [Suspect]
     Indication: ACUTE HIV INFECTION
     Dosage: 300 MG, UNK
     Route: 048
     Dates: start: 20100120, end: 20121121

REACTIONS (3)
  - Confusional state [Recovered/Resolved]
  - Headache [Recovered/Resolved]
  - Muscular weakness [Recovered/Resolved]
